FAERS Safety Report 7329838-8 (Version None)
Quarter: 2011Q1

REPORT INFORMATION
  Report Type: 
  Country: None (occurrence: None)
  Receive Date: 20110303
  Receipt Date: 20110218
  Transmission Date: 20110831
  Serious: Yes (Other)
  Sender: FDA-Public Use
  Company Number: US-ELI_LILLY_AND_COMPANY-US201102005747

PATIENT
  Age: 51 Year
  Sex: Male

DRUGS (2)
  1. ZYPREXA [Suspect]
     Indication: BIPOLAR DISORDER
     Dosage: 5 MG, DAILY (1/D)
  2. LITHIUM [Concomitant]

REACTIONS (5)
  - WEIGHT INCREASED [None]
  - GASTROINTESTINAL HAEMORRHAGE [None]
  - METABOLIC SYNDROME [None]
  - IMPAIRED GASTRIC EMPTYING [None]
  - HYPERPHAGIA [None]
